FAERS Safety Report 23177050 (Version 1)
Quarter: 2023Q4

REPORT INFORMATION
  Report Type: Spontaneous
  Country: US (occurrence: None)
  Receive Date: 20231112
  Receipt Date: 20231112
  Transmission Date: 20240110
  Serious: Yes (Life-Threatening, Other)
  Sender: FDA-Public Use
  Company Number: None

PATIENT
  Age: 28 Year
  Sex: Female
  Weight: 77.4 kg

DRUGS (1)
  1. DESVENLAFAXINE [Suspect]
     Active Substance: DESVENLAFAXINE
     Indication: Major depression
     Dosage: OTHER QUANTITY : 1 TABLET(S);?FREQUENCY : DAILY;?
     Route: 048
     Dates: start: 20231031, end: 20231111

REACTIONS (6)
  - Vaginal haemorrhage [None]
  - Loss of consciousness [None]
  - Nausea [None]
  - Vomiting [None]
  - Decreased appetite [None]
  - Thrombosis [None]

NARRATIVE: CASE EVENT DATE: 20231101
